FAERS Safety Report 24241877 (Version 1)
Quarter: 2024Q3

REPORT INFORMATION
  Report Type: Spontaneous
  Country: CA (occurrence: CA)
  Receive Date: 20240823
  Receipt Date: 20240823
  Transmission Date: 20241017
  Serious: Yes (Life-Threatening, Hospitalization, Disabling, Other)
  Sender: BAXTER
  Company Number: CA-BAXTER-2024BAX023260

PATIENT
  Age: 40 Year
  Sex: Female
  Weight: 54 kg

DRUGS (2)
  1. CYCLOPHOSPHAMIDE [Suspect]
     Active Substance: CYCLOPHOSPHAMIDE
     Indication: Breast cancer stage II
     Dosage: 1.0 DOSAGE FORM, 1 EVERY 3 WEEKS, DOSAGE FORM: NOT SPECIFIED
     Route: 042
  2. TAXOTERE [Suspect]
     Active Substance: DOCETAXEL
     Indication: Breast cancer stage II
     Dosage: 1.0 DOSAGE FORM, 1 EVERY 3 WEEKS, DOSAGE FORM: SOLUTION INTRAVENOUS
     Route: 042

REACTIONS (7)
  - Arteriospasm coronary [Recovered/Resolved with Sequelae]
  - Mitral valve stenosis [Recovered/Resolved with Sequelae]
  - Vaginal haemorrhage [Recovered/Resolved with Sequelae]
  - Asthenia [Recovered/Resolved with Sequelae]
  - Chest pain [Recovered/Resolved with Sequelae]
  - Dyspnoea [Recovered/Resolved with Sequelae]
  - Tachycardia [Recovered/Resolved with Sequelae]
